FAERS Safety Report 9844391 (Version 1)
Quarter: 2014Q1

REPORT INFORMATION
  Report Type: Spontaneous
  Country: US (occurrence: None)
  Receive Date: 20140102
  Receipt Date: 20140102
  Transmission Date: 20141002
  Serious: Yes (Other)
  Sender: FDA-Public Use
  Company Number: 45573

PATIENT
  Age: 59 Year
  Sex: Female
  Weight: 77.6 kg

DRUGS (13)
  1. GLASSIA [Suspect]
     Route: 042
     Dates: start: 201201
  2. LIPITOR [Concomitant]
  3. CARAFATE [Concomitant]
  4. FLONASE [Concomitant]
  5. XANAX [Concomitant]
  6. ALLEGRA D [Concomitant]
  7. SPIRIVA [Concomitant]
  8. VALTOREX [Concomitant]
  9. CALCIUM [Concomitant]
  10. NEXIUM [Concomitant]
  11. ASPIRIN [Concomitant]
  12. PAXIL [Concomitant]
  13. TOPROL XL [Concomitant]

REACTIONS (1)
  - Breast cancer [None]
